FAERS Safety Report 10544806 (Version 1)
Quarter: 2014Q4

REPORT INFORMATION
  Report Type: Spontaneous
  Country: US (occurrence: None)
  Receive Date: 20141020
  Receipt Date: 20141020
  Transmission Date: 20150529
  Serious: No
  Sender: FDA-Public Use
  Company Number: AEGR000574

PATIENT
  Age: 57 Year
  Sex: Male
  Weight: 80.2 kg

DRUGS (9)
  1. CYMBALTA(DULOXETINE HYDROCHLORIDE) [Concomitant]
  2. OXYCONTIN(OXYCODONE HYDROCHLORIDE) [Concomitant]
  3. VITAMIN E (TOCOPHERLY ACETATE) [Concomitant]
  4. SEROQUEL(QUETIAPIN FUMARATE) [Concomitant]
  5. ALPRAZOLAM. [Concomitant]
     Active Substance: ALPRAZOLAM
  6. METOPROLOL(METOPROLOL TARTRATE) [Concomitant]
  7. JUXTAPID [Suspect]
     Active Substance: LOMITAPIDE MESYLATE
     Indication: HYPERLIPIDAEMIA
     Dosage: 40 MG, QD AT HS, ORAL
     Route: 048
     Dates: start: 201303
  8. CLONAZEPAM. [Concomitant]
     Active Substance: CLONAZEPAM
  9. OMEGA 3 (FISH OIL) [Concomitant]
     Active Substance: OMEGA-3 FATTY ACIDS

REACTIONS (4)
  - Off label use [None]
  - Fall [None]
  - Rib fracture [None]
  - Ankle fracture [None]
